FAERS Safety Report 9109189 (Version 2)
Quarter: 2013Q3

REPORT INFORMATION
  Report Type: Report from Study
  Country: US (occurrence: US)
  Receive Date: 20130222
  Receipt Date: 20130726
  Transmission Date: 20140515
  Serious: Yes (Death)
  Sender: FDA-Public Use
  Company Number: PHEH2013US004442

PATIENT
  Age: 73 Year
  Sex: Female

DRUGS (1)
  1. RECLAST [Suspect]
     Indication: OSTEOPOROSIS
     Dosage: UNK
     Route: 042
     Dates: start: 20120525

REACTIONS (1)
  - Colon cancer recurrent [Fatal]
